FAERS Safety Report 5958342-4 (Version None)
Quarter: 2008Q4

REPORT INFORMATION
  Report Type: 
  Country: None (occurrence: None)
  Receive Date: 20081117
  Receipt Date: 20081107
  Transmission Date: 20090506
  Serious: Yes (Hospitalization)
  Sender: FDA-Public Use
  Company Number: 104487

PATIENT
  Age: 52 Year
  Sex: Male

DRUGS (7)
  1. IBUPROFEN TABLETS [Suspect]
     Indication: HEADACHE
     Dosage: 800MG /PRN/ ORAL
     Route: 048
  2. CARVEDILOL 6.23 MG [Concomitant]
  3. SPIRONOLACTONE [Concomitant]
  4. FUROSEMIDE [Concomitant]
  5. LISINOPRIL [Concomitant]
  6. DEXAMETHASONE ELIXIR 5 MG [Concomitant]
  7. LIDOCAINE VISCOUS GELD 2% [Concomitant]

REACTIONS (13)
  - BLISTER [None]
  - BREATH ODOUR [None]
  - COMA [None]
  - CONJUNCTIVAL SCAR [None]
  - DRUG HYPERSENSITIVITY [None]
  - ORAL PAIN [None]
  - PYREXIA [None]
  - RASH [None]
  - SEPSIS [None]
  - SPEECH DISORDER [None]
  - STEVENS-JOHNSON SYNDROME [None]
  - TOXIC EPIDERMAL NECROLYSIS [None]
  - VISUAL ACUITY REDUCED [None]
